FAERS Safety Report 6801016-8 (Version None)
Quarter: 2010Q2

REPORT INFORMATION
  Report Type: 
  Country: None (occurrence: None)
  Receive Date: 20100629
  Receipt Date: 20100616
  Transmission Date: 20101027
  Serious: Yes (Hospitalization, Other)
  Sender: FDA-Public Use
  Company Number: PHHY2010GB26348

PATIENT
  Sex: Female

DRUGS (4)
  1. CLOZARIL [Suspect]
     Indication: SCHIZOPHRENIA
     Dosage: 375 MG
     Route: 048
     Dates: start: 20100322
  2. LAMOTRIGINE [Concomitant]
     Indication: MOOD ALTERED
     Dosage: 100 MG, BID
     Route: 048
  3. HYOSCINE HBR HYT [Concomitant]
     Indication: SALIVARY HYPERSECRETION
     Dosage: 300UG
     Route: 048
  4. LEVOTHYROXINE SODIUM [Concomitant]
     Indication: HYPOTHYROIDISM
     Dosage: 100UG
     Route: 048

REACTIONS (3)
  - CATHETER SITE INFECTION [None]
  - IMPLANT SITE ABSCESS [None]
  - PLATELET COUNT INCREASED [None]
